FAERS Safety Report 16966086 (Version 5)
Quarter: 2025Q3

REPORT INFORMATION
  Report Type: Spontaneous
  Country: US (occurrence: US)
  Receive Date: 20191028
  Receipt Date: 20250827
  Transmission Date: 20251020
  Serious: Yes (Other)
  Sender: PFIZER
  Company Number: US-PFIZER INC-2019463283

PATIENT
  Age: 62 Year
  Sex: Female

DRUGS (11)
  1. XELJANZ XR [Suspect]
     Active Substance: TOFACITINIB CITRATE
     Dates: start: 2024, end: 202407
  2. XELJANZ XR [Suspect]
     Active Substance: TOFACITINIB CITRATE
     Dosage: 11 MG, 1X/DAY FOR 90 DAYS
     Route: 048
     Dates: start: 202504
  3. CALCIUM [Concomitant]
     Active Substance: CALCIUM
     Indication: Bone loss
  4. CHOLECALCIFEROL [Concomitant]
     Active Substance: CHOLECALCIFEROL
     Indication: Bone loss
  5. ADVAIR HFA [Concomitant]
     Active Substance: FLUTICASONE PROPIONATE\SALMETEROL XINAFOATE
  6. TRAMADOL [Concomitant]
     Active Substance: TRAMADOL
  7. LOSARTAN [Concomitant]
     Active Substance: LOSARTAN
  8. ALPRAZOLAM [Concomitant]
     Active Substance: ALPRAZOLAM
  9. BACLOFEN [Concomitant]
     Active Substance: BACLOFEN
  10. FAMOTIDINE [Concomitant]
     Active Substance: FAMOTIDINE
  11. METOCLOPRAMIDE [Concomitant]
     Active Substance: METOCLOPRAMIDE

REACTIONS (12)
  - Colitis ulcerative [Not Recovered/Not Resolved]
  - Blood test abnormal [Unknown]
  - Blood cholesterol increased [Unknown]
  - High density lipoprotein increased [Unknown]
  - Product prescribing error [Unknown]
  - Tendonitis [Unknown]
  - Trigger finger [Unknown]
  - Arthralgia [Unknown]
  - Musculoskeletal stiffness [Unknown]
  - Spinal stenosis [Unknown]
  - Pain in extremity [Unknown]
  - Nodule [Unknown]
